FAERS Safety Report 9285640 (Version 1)
Quarter: 2013Q2

REPORT INFORMATION
  Report Type: Spontaneous
  Country: NG (occurrence: NG)
  Receive Date: 20130513
  Receipt Date: 20130513
  Transmission Date: 20140414
  Serious: Yes (Hospitalization, Other)
  Sender: FDA-Public Use
  Company Number: NG-JNJFOC-20130500167

PATIENT
  Age: 67 Year
  Sex: Female

DRUGS (2)
  1. HALOPERIDOL [Suspect]
     Indication: PRODUCT USED FOR UNKNOWN INDICATION
     Route: 065
  2. BENZHEXOL [Suspect]
     Indication: PRODUCT USED FOR UNKNOWN INDICATION
     Route: 065

REACTIONS (13)
  - Dystonia [Recovering/Resolving]
  - Hypertonia [Recovering/Resolving]
  - Executive dysfunction [None]
  - Memory impairment [None]
  - Speech disorder [None]
  - Visual impairment [None]
  - Masked facies [None]
  - Gait disturbance [None]
  - Cogwheel rigidity [None]
  - Resting tremor [None]
  - Cerebral atrophy [None]
  - Cognitive disorder [None]
  - Palmomental reflex [None]
